FAERS Safety Report 19281586 (Version 1)
Quarter: 2021Q2

REPORT INFORMATION
  Report Type: Spontaneous
  Country: US (occurrence: US)
  Receive Date: 20210521
  Receipt Date: 20210521
  Transmission Date: 20210717
  Serious: No
  Sender: FDA-Public Use
  Company Number: US-BIOCODEX SA-2021000158

PATIENT

DRUGS (4)
  1. CLOBAZAM. [Concomitant]
     Active Substance: CLOBAZAM
     Indication: SEVERE MYOCLONIC EPILEPSY OF INFANCY
     Route: 065
  2. EPIDIOLEX [Concomitant]
     Active Substance: CANNABIDIOL
     Indication: PRODUCT USED FOR UNKNOWN INDICATION
     Route: 065
  3. FENFLURAMINE                       /00044002/ [Concomitant]
     Indication: PRODUCT USED FOR UNKNOWN INDICATION
     Route: 065
  4. DIACOMIT [Suspect]
     Active Substance: STIRIPENTOL
     Indication: SEVERE MYOCLONIC EPILEPSY OF INFANCY
     Dosage: MIX 2 PACKET (500MG) IN 100ML OF WATER AND TAKE BY MOUTH IN THE MORNING THEN MIX 3 PACKET (750MG) IN
     Route: 048
     Dates: start: 20201023

REACTIONS (3)
  - Overdose [Unknown]
  - No adverse event [Unknown]
  - Product dose omission issue [Unknown]
